FAERS Safety Report 25370053 (Version 2)
Quarter: 2025Q2

REPORT INFORMATION
  Report Type: Spontaneous
  Country: FR (occurrence: FR)
  Receive Date: 20250528
  Receipt Date: 20250626
  Transmission Date: 20250716
  Serious: Yes (Other)
  Sender: ETHYPHARM
  Company Number: FR-ETHYPHARM-2025000087

PATIENT
  Sex: Male

DRUGS (2)
  1. BUPRENORPHINE [Suspect]
     Active Substance: BUPRENORPHINE
     Indication: Drug withdrawal maintenance therapy
     Route: 045
  2. OXAZEPAM [Concomitant]
     Active Substance: OXAZEPAM
     Indication: Anxiety

REACTIONS (9)
  - Drug effective for unapproved indication [Unknown]
  - Feeling of relaxation [Unknown]
  - Intentional product use issue [Unknown]
  - Energy increased [Unknown]
  - Libido decreased [Unknown]
  - Nasal obstruction [Unknown]
  - Drug dependence [Unknown]
  - Chest discomfort [Unknown]
  - Therapeutic response unexpected [Unknown]
